FAERS Safety Report 7414659 (Version 3)
Quarter: 2018Q3

REPORT INFORMATION
  Report Type: Spontaneous
  Country: DE (occurrence: DE)
  Receive Date: 20100609
  Receipt Date: 20180725
  Transmission Date: 20181010
  Serious: Yes (Hospitalization)
  Sender: FDA-Public Use
  Company Number: DE-TEVA-236794ISR

PATIENT
  Age: 71 Year
  Sex: Female
  Weight: 78 kg

DRUGS (5)
  1. RISEDRONATE SODIUM. [Suspect]
     Active Substance: RISEDRONATE SODIUM
     Indication: OSTEOPOROSIS
     Dosage: 35 MILLIGRAM DAILY; DAILY DOSE: 35 MG MILLIGRAM(S) EVERY WEEK
     Route: 048
     Dates: start: 2008, end: 20100505
  2. BISOPROLOL [Suspect]
     Active Substance: BISOPROLOL
     Indication: ATRIAL FIBRILLATION
     Dosage: 5 MILLIGRAM DAILY;
     Route: 048
     Dates: start: 20091203
  3. PHENPROCOUMON [Suspect]
     Active Substance: PHENPROCOUMON
     Indication: ATRIAL FIBRILLATION
     Route: 048
     Dates: start: 20091203, end: 20100504
  4. FALITHROM [Suspect]
     Active Substance: PHENPROCOUMON
     Dosage: 1/2?1?1/2?1?1/2?1?1/2 MO?SO (BIS 15.04.2010 16.5MG/WOCHE)
     Route: 048
     Dates: start: 20091203, end: 20100504
  5. FALITHROM [Suspect]
     Active Substance: PHENPROCOUMON
     Indication: ATRIAL FIBRILLATION
     Dosage: DAILY DOSE: 15 MG MILLIGRAM(S) EVERY WEEK
     Route: 048
     Dates: start: 20100416, end: 20100504

REACTIONS (17)
  - Vomiting [Not Recovered/Not Resolved]
  - Jaundice [Not Recovered/Not Resolved]
  - Abdominal distension [Not Recovered/Not Resolved]
  - Drug-induced liver injury [Not Recovered/Not Resolved]
  - Decreased appetite [Not Recovered/Not Resolved]
  - Jaundice [Not Recovered/Not Resolved]
  - Faeces pale [Not Recovered/Not Resolved]
  - Drug-induced liver injury [Not Recovered/Not Resolved]
  - General physical condition abnormal [Unknown]
  - Heart rate increased [Unknown]
  - Abdominal distension [Unknown]
  - Performance status decreased [Unknown]
  - Prothrombin time prolonged [Unknown]
  - Acute hepatic failure [Not Recovered/Not Resolved]
  - Overdose [Unknown]
  - Decreased appetite [Unknown]
  - Drug-induced liver injury [Not Recovered/Not Resolved]

NARRATIVE: CASE EVENT DATE: 20100504
